FAERS Safety Report 21993436 (Version 1)
Quarter: 2023Q1

REPORT INFORMATION
  Report Type: Spontaneous
  Country: US (occurrence: US)
  Receive Date: 20230215
  Receipt Date: 20230215
  Transmission Date: 20230418
  Serious: No
  Sender: FDA-Public Use
  Company Number: US-TEVA-2023-US-2852033

PATIENT
  Sex: Male

DRUGS (3)
  1. CLONAZEPAM [Suspect]
     Active Substance: CLONAZEPAM
     Indication: Post-traumatic stress disorder
     Dosage: 2 MG
     Route: 065
  2. CLONAZEPAM [Suspect]
     Active Substance: CLONAZEPAM
     Indication: Panic attack
  3. CLONAZEPAM [Suspect]
     Active Substance: CLONAZEPAM
     Indication: Anxiety

REACTIONS (9)
  - Nausea [Unknown]
  - Dizziness [Unknown]
  - Anxiety [Unknown]
  - Middle insomnia [Unknown]
  - Tremor [Unknown]
  - Withdrawal syndrome [Unknown]
  - Loss of personal independence in daily activities [Unknown]
  - Drug effect less than expected [Unknown]
  - Product substitution issue [Unknown]
